FAERS Safety Report 23259438 (Version 2)
Quarter: 2023Q4

REPORT INFORMATION
  Report Type: Spontaneous
  Country: SI (occurrence: SI)
  Receive Date: 20231204
  Receipt Date: 20231218
  Transmission Date: 20240110
  Serious: Yes (Death, Life-Threatening, Hospitalization, Other)
  Sender: FDA-Public Use
  Company Number: SI-MYLANLABS-2023M1122636

PATIENT
  Age: 75 Year
  Sex: Female

DRUGS (1)
  1. DULOXETINE HYDROCHLORIDE [Suspect]
     Active Substance: DULOXETINE HYDROCHLORIDE
     Indication: Product used for unknown indication
     Dosage: UNK, UNKNOWN
     Route: 065

REACTIONS (8)
  - Death [Fatal]
  - Hypoglycaemia [Recovered/Resolved]
  - Poisoning [Unknown]
  - Cardiac arrest [Recovered/Resolved]
  - Overdose [Unknown]
  - Hyponatraemia [Unknown]
  - Breast cancer [Unknown]
  - Pulmonary embolism [Unknown]
